FAERS Safety Report 15371010 (Version 1)
Quarter: 2018Q3

REPORT INFORMATION
  Report Type: Spontaneous
  Country: US (occurrence: US)
  Receive Date: 20180911
  Receipt Date: 20180911
  Transmission Date: 20181010
  Serious: Yes (Other)
  Sender: FDA-Public Use
  Company Number: US-GLAXOSMITHKLINE-US2018GSK160204

PATIENT

DRUGS (1)
  1. LAMICTAL XR [Suspect]
     Active Substance: LAMOTRIGINE
     Indication: SEIZURE
     Route: 065

REACTIONS (5)
  - Infection susceptibility increased [Unknown]
  - Menstrual disorder [Unknown]
  - Impaired healing [Unknown]
  - Wound [Unknown]
  - Infection [Unknown]
